FAERS Safety Report 6741263-7 (Version None)
Quarter: 2010Q2

REPORT INFORMATION
  Report Type: 
  Country: None (occurrence: None)
  Receive Date: 20100526
  Receipt Date: 20100526
  Transmission Date: 20101027
  Serious: Yes (Hospitalization)
  Sender: FDA-Public Use
  Company Number: None

PATIENT
  Age: 29 Month
  Sex: Female
  Weight: 12.7007 kg

DRUGS (1)
  1. CHILDREN'S TYLENOL SUSPENSION [Suspect]
     Indication: TEETHING
     Dates: start: 20100319, end: 20100319

REACTIONS (5)
  - ABNORMAL BEHAVIOUR [None]
  - CYANOSIS [None]
  - DISTURBANCE IN ATTENTION [None]
  - HYPOTONIA [None]
  - PRESYNCOPE [None]
